FAERS Safety Report 7156105-8 (Version None)
Quarter: 2010Q4

REPORT INFORMATION
  Report Type: 
  Country: None (occurrence: None)
  Receive Date: 20101123
  Receipt Date: 20101014
  Transmission Date: 20110411
  Serious: Yes (Other)
  Sender: FDA-Public Use
  Company Number: 009853

PATIENT
  Sex: Female

DRUGS (2)
  1. CIMZIA [Suspect]
     Indication: CROHN'S DISEASE
     Dosage: (400 MG1X/MONTH SUBCUTANEOUS)
     Route: 058
     Dates: start: 20081029
  2. CIMZIA [Suspect]

REACTIONS (1)
  - CROHN'S DISEASE [None]
